APPROVED DRUG PRODUCT: TRIDESILON
Active Ingredient: ACETIC ACID, GLACIAL; DESONIDE
Strength: 2%;0.05%
Dosage Form/Route: SOLUTION/DROPS;OTIC
Application: N017914 | Product #001
Applicant: BAYER PHARMACEUTICALS CORP
Approved: Approved Prior to Jan 1, 1982 | RLD: No | RS: No | Type: DISCN